FAERS Safety Report 15375048 (Version 4)
Quarter: 2018Q4

REPORT INFORMATION
  Report Type: Spontaneous
  Country: FR (occurrence: FR)
  Receive Date: 20180912
  Receipt Date: 20181120
  Transmission Date: 20190204
  Serious: Yes (Hospitalization, Other)
  Sender: FDA-Public Use
  Company Number: FR-PFIZER INC-2018361721

PATIENT
  Age: 80 Year
  Sex: Female
  Weight: 92 kg

DRUGS (2)
  1. FASLODEX [Suspect]
     Active Substance: FULVESTRANT
     Indication: BREAST CANCER METASTATIC
     Dosage: 500 MG, MONTHLY + A SUPPLEMENTAL DOSE OF 500 MG TWO WEEKS AFTER THE INITIAL DOSE
     Route: 030
     Dates: start: 20180813
  2. IBRANCE [Suspect]
     Active Substance: PALBOCICLIB
     Indication: BREAST CANCER METASTATIC
     Dosage: 125 MG, 1X/DAY CONTINUOUSLY
     Route: 048
     Dates: start: 20180813, end: 20180903

REACTIONS (2)
  - Off label use [Unknown]
  - Bone marrow failure [Not Recovered/Not Resolved]

NARRATIVE: CASE EVENT DATE: 20180901
